FAERS Safety Report 8349727-X (Version None)
Quarter: 2012Q2

REPORT INFORMATION
  Report Type: 
  Country: None (occurrence: None)
  Receive Date: 20120509
  Receipt Date: 20120509
  Transmission Date: 20120825
  Serious: Yes (Hospitalization)
  Sender: FDA-Public Use
  Company Number: None

PATIENT
  Sex: Male
  Weight: 65 kg

DRUGS (5)
  1. PREDNISONE [Suspect]
     Dosage: 500 MG
  2. CYCLOPHOSPHAMIDE [Suspect]
     Dosage: 1350 MG
  3. VINCRISTINE SULFATE [Suspect]
     Dosage: 0 MG
  4. DOXIL [Suspect]
     Dosage: 72 MG
  5. RITUXIMAB (MOAB C2B8 ANTI CD20, CHIMERIC) [Suspect]
     Dosage: 675 MG

REACTIONS (7)
  - ABDOMINAL ABSCESS [None]
  - NEOPLASM PROGRESSION [None]
  - SMALL INTESTINAL OBSTRUCTION [None]
  - BACTERIAL TEST POSITIVE [None]
  - DIFFUSE LARGE B-CELL LYMPHOMA STAGE IV [None]
  - FEBRILE NEUTROPENIA [None]
  - HYPOKALAEMIA [None]
